FAERS Safety Report 10242039 (Version 2)
Quarter: 2014Q2

REPORT INFORMATION
  Report Type: Spontaneous
  Country: US (occurrence: US)
  Receive Date: 20140617
  Receipt Date: 20140617
  Transmission Date: 20141212
  Serious: Yes (Hospitalization, Other)
  Sender: FDA-Public Use
  Company Number: PHHY2012US101990

PATIENT
  Sex: Female

DRUGS (5)
  1. LIORESAL INTRATECAL [Suspect]
     Indication: MUSCLE SPASTICITY
     Dosage: 400 UKN, UNK
     Route: 037
  2. LIORESAL INTRATECAL [Suspect]
     Dosage: 300 UG / DAY
     Route: 037
  3. LIORESAL INTRATECAL [Suspect]
     Dosage: 150 UG / DAY
     Route: 037
  4. TIZANIDINE SANDOZ [Suspect]
     Dosage: UNK UKN, UNK
  5. DIAZEPAM [Suspect]
     Dosage: UNK UKN, UNK

REACTIONS (11)
  - Performance status decreased [Unknown]
  - Coma [Unknown]
  - Respiratory depression [Recovered/Resolved]
  - Dyspnoea [Recovered/Resolved]
  - Hypotonia [Recovered/Resolved]
  - Insomnia [Recovered/Resolved]
  - Sedation [Unknown]
  - Muscle spasms [Recovered/Resolved]
  - Muscle tightness [Recovered/Resolved]
  - Muscle spasticity [Recovered/Resolved]
  - Overdose [Unknown]
